FAERS Safety Report 19569753 (Version 1)
Quarter: 2021Q3

REPORT INFORMATION
  Report Type: Spontaneous
  Country: US (occurrence: US)
  Receive Date: 20210716
  Receipt Date: 20210716
  Transmission Date: 20211014
  Serious: No
  Sender: FDA-Public Use
  Company Number: NVSC2021US152934

PATIENT
  Sex: Male

DRUGS (3)
  1. METFORMIN [Concomitant]
     Active Substance: METFORMIN HYDROCHLORIDE
     Indication: GLUCOSE TOLERANCE IMPAIRED
     Dosage: UNK, QD, 500MG ONCE DAILY
     Route: 065
     Dates: start: 2018, end: 202103
  2. FUSION PLUS [Concomitant]
     Active Substance: IRON\VITAMIN B
     Indication: MINERAL SUPPLEMENTATION
     Dosage: UNK, BID, UNKNOWN DOSE, TWICE DAILY
     Route: 065
  3. DONEPEZIL HYDROCHLORIDE. [Suspect]
     Active Substance: DONEPEZIL HYDROCHLORIDE
     Indication: PRODUCT USED FOR UNKNOWN INDICATION
     Dosage: UNK, TAKE 1 BY MOUTH BEFORE BEDTIME
     Route: 065

REACTIONS (1)
  - Ulcer [Unknown]

NARRATIVE: CASE EVENT DATE: 202007
